FAERS Safety Report 9458414 (Version 2)
Quarter: 2013Q4

REPORT INFORMATION
  Report Type: Report from Study
  Country: US (occurrence: US)
  Receive Date: 20130814
  Receipt Date: 20131025
  Transmission Date: 20140711
  Serious: Yes (Other)
  Sender: FDA-Public Use
  Company Number: US-BAYER-2013-095725

PATIENT
  Age: 66 Year
  Sex: Male

DRUGS (1)
  1. XOFIGO [Suspect]
     Indication: PROSTATE CANCER METASTATIC
     Dosage: TOTAL DAILY DOSE:102.5
     Route: 042
     Dates: start: 20130724

REACTIONS (1)
  - Dyspnoea [None]
